FAERS Safety Report 10733423 (Version 2)
Quarter: 2015Q1

REPORT INFORMATION
  Report Type: Report from Study
  Country: TW (occurrence: TW)
  Receive Date: 20150123
  Receipt Date: 20150130
  Transmission Date: 20150721
  Serious: Yes (Death, Other)
  Sender: FDA-Public Use
  Company Number: PHHY2013TW041005

PATIENT
  Age: 71 Year
  Sex: Male
  Weight: 50.4 kg

DRUGS (1)
  1. ACLASTA [Suspect]
     Active Substance: ZOLEDRONIC ACID
     Indication: OSTEOPOROSIS
     Dosage: 5 MG
     Route: 042
     Dates: start: 20120222

REACTIONS (6)
  - Respiratory failure [Fatal]
  - Auricular swelling [Unknown]
  - Cerebral atrophy [Not Recovered/Not Resolved]
  - Stupor [Unknown]
  - Coma [Unknown]
  - Loss of consciousness [Unknown]

NARRATIVE: CASE EVENT DATE: 20130102
